FAERS Safety Report 6543320-7 (Version None)
Quarter: 2010Q1

REPORT INFORMATION
  Report Type: 
  Country: None (occurrence: None)
  Receive Date: 20100120
  Receipt Date: 20100115
  Transmission Date: 20100710
  Serious: Yes (Death, Hospitalization)
  Sender: FDA-Public Use
  Company Number: JP-ROCHE-648317

PATIENT
  Sex: Male

DRUGS (15)
  1. TOCILIZUMAB [Suspect]
     Indication: RHEUMATOID ARTHRITIS
     Route: 041
     Dates: start: 20090526, end: 20090526
  2. TOCILIZUMAB [Suspect]
     Route: 041
     Dates: start: 20090616, end: 20090616
  3. TOCILIZUMAB [Suspect]
     Route: 041
     Dates: start: 20090701, end: 20090701
  4. TOCILIZUMAB [Suspect]
     Route: 041
     Dates: start: 20090818, end: 20090818
  5. TOCILIZUMAB [Suspect]
     Route: 041
     Dates: start: 20090908, end: 20090908
  6. TOCILIZUMAB [Suspect]
     Route: 041
     Dates: start: 20091006
  7. PREDNISOLONE [Concomitant]
     Dosage: FORM REPORTED AS ORAL FORMULATION (NOT OTHERWISE SPECIFIED).
     Route: 048
  8. ZYLORIC [Concomitant]
     Route: 048
  9. LASIX [Concomitant]
     Dosage: DOSE FORM REPORTED AS ORAL FORMULATION (NOT OTHERWISE SPECIFIED).
     Route: 048
  10. ADALAT [Concomitant]
     Dosage: DOSE FORM REPORTED AS SUSTAINED RELEASE TABLET.
     Route: 048
  11. ACECOL [Concomitant]
     Route: 048
  12. BETAZOL [Concomitant]
     Dosage: DOSE FORM REPORTED AS SUSTAINED RELEASE TABLET.
     Route: 048
  13. LOXONIN [Concomitant]
     Dosage: DOSE FORM REPORTED AS ORAL FORMULATION (NOT OTHERWISE SPECIFIED).
     Route: 048
  14. MAGMITT [Concomitant]
     Route: 048
  15. ACINON [Concomitant]
     Route: 048

REACTIONS (2)
  - DEATH [None]
  - PANCREATITIS [None]
